FAERS Safety Report 4441418-0 (Version None)
Quarter: 2004Q3

REPORT INFORMATION
  Report Type: 
  Country: None (occurrence: None)
  Receive Date: 20040728
  Receipt Date: 20040427
  Transmission Date: 20050211
  Serious: No
  Sender: FDA-Public Use
  Company Number: USA040466146

PATIENT
  Age: 13 Year
  Sex: 0
  Weight: 87 kg

DRUGS (3)
  1. STRATTERA [Suspect]
     Dosage: 40 MG
     Dates: start: 20030401
  2. ADDERALL 10 [Concomitant]
  3. ALT/SGPT, ALANINE AMINOTRANSFERASE/89 [Concomitant]

REACTIONS (1)
  - HEPATIC ENZYME INCREASED [None]
